FAERS Safety Report 4359889-7 (Version None)
Quarter: 2004Q2

REPORT INFORMATION
  Report Type: 
  Country: None (occurrence: None)
  Receive Date: 20040513
  Receipt Date: 20040430
  Transmission Date: 20050107
  Serious: Yes (Other)
  Sender: FDA-Public Use
  Company Number: 205092

PATIENT
  Age: 57 Year
  Sex: Female

DRUGS (5)
  1. MABTHERA (RITUXIMAB) CONC FOR SOLUTION FOR INFUSION [Suspect]
     Indication: NON-HODGKIN'S LYMPHOMA
     Dosage: SEE IMAGE
     Route: 042
     Dates: start: 20040101, end: 20040201
  2. MABTHERA (RITUXIMAB) CONC FOR SOLUTION FOR INFUSION [Suspect]
     Indication: NON-HODGKIN'S LYMPHOMA
     Dosage: SEE IMAGE
     Route: 042
     Dates: start: 20020301
  3. MABTHERA (RITUXIMAB) CONC FOR SOLUTION FOR INFUSION [Suspect]
     Indication: NON-HODGKIN'S LYMPHOMA
     Dosage: SEE IMAGE
     Route: 042
     Dates: start: 20021001
  4. MABTHERA (RITUXIMAB) CONC FOR SOLUTION FOR INFUSION [Suspect]
     Indication: NON-HODGKIN'S LYMPHOMA
     Dosage: SEE IMAGE
     Route: 042
     Dates: start: 20030501
  5. METHYLPREDNISOLONE ACETATE [Suspect]
     Dosage: 1 MG/KG,
     Dates: start: 20040101, end: 20040201

REACTIONS (8)
  - ARRHYTHMIA [None]
  - CRYOGLOBULINAEMIA [None]
  - HEADACHE [None]
  - INFUSION RELATED REACTION [None]
  - LEUKOPENIA [None]
  - METABOLIC DISORDER [None]
  - THROMBOCYTOPENIA [None]
  - VASCULITIS GASTROINTESTINAL [None]
